FAERS Safety Report 7580115-X (Version None)
Quarter: 2011Q2

REPORT INFORMATION
  Report Type: 
  Country: None (occurrence: None)
  Receive Date: 20110629
  Receipt Date: 20110617
  Transmission Date: 20111010
  Serious: Yes (Hospitalization, Other)
  Sender: FDA-Public Use
  Company Number: CA-ELI_LILLY_AND_COMPANY-CA201106005117

PATIENT
  Sex: Male

DRUGS (11)
  1. PERINDOPRIL ERBUMINE [Concomitant]
  2. ADALAT CC [Concomitant]
  3. METOPROLOL TARTRATE [Concomitant]
  4. ZYPREXA [Suspect]
     Indication: MAJOR DEPRESSION
     Dosage: 2.5 MG, EACH EVENING
     Dates: start: 20030721
  5. XANAX [Concomitant]
  6. LORAZEPAM [Concomitant]
  7. ZOLOFT [Concomitant]
  8. PLENDIL [Concomitant]
  9. HYDROCHLOROTHIAZIDE [Concomitant]
  10. ALTACE [Concomitant]
  11. CITALOPRAM HYDROBROMIDE [Concomitant]

REACTIONS (11)
  - DIABETES MELLITUS [None]
  - ANAEMIA [None]
  - HYPOTENSION [None]
  - ANGINA PECTORIS [None]
  - RENAL FAILURE ACUTE [None]
  - LOSS OF CONSCIOUSNESS [None]
  - OFF LABEL USE [None]
  - DYSLIPIDAEMIA [None]
  - WEIGHT INCREASED [None]
  - MYOCARDIAL INFARCTION [None]
  - RENAL TUBULAR NECROSIS [None]
